FAERS Safety Report 12153792 (Version 1)
Quarter: 2016Q1

REPORT INFORMATION
  Report Type: Report from Study
  Country: US (occurrence: US)
  Receive Date: 20160307
  Receipt Date: 20160307
  Transmission Date: 20160526
  Serious: No
  Sender: FDA-Public Use
  Company Number: US-AMGEN-USASL2016026076

PATIENT
  Age: 59 Year
  Sex: Male

DRUGS (1)
  1. ENBREL [Suspect]
     Active Substance: ETANERCEPT
     Indication: RHEUMATOID ARTHRITIS
     Dosage: UNK UNK, QWK
     Route: 065
     Dates: start: 20160115

REACTIONS (6)
  - Back pain [Not Recovered/Not Resolved]
  - Fall [Unknown]
  - Arthralgia [Not Recovered/Not Resolved]
  - Gait disturbance [Unknown]
  - Skin abrasion [Unknown]
  - Pain in extremity [Not Recovered/Not Resolved]

NARRATIVE: CASE EVENT DATE: 201602
